FAERS Safety Report 8908411 (Version 2)
Quarter: 2013Q1

REPORT INFORMATION
  Report Type: Spontaneous
  Country: US (occurrence: US)
  Receive Date: 20121114
  Receipt Date: 20130111
  Transmission Date: 20140127
  Serious: No
  Sender: FDA-Public Use
  Company Number: US-PFIZER INC-2012284177

PATIENT
  Age: 54 Year
  Sex: Female
  Weight: 106 kg

DRUGS (7)
  1. CHANTIX [Suspect]
     Dosage: 1 MG, 2X/DAY
     Dates: start: 2012, end: 20121110
  2. CHANTIX [Suspect]
     Dosage: 1 MG, DAILY
     Dates: start: 20121111
  3. CODEINE [Suspect]
     Dosage: UNK
  4. BIOTIN [Concomitant]
     Indication: SKIN DISORDER
     Dosage: 5000 UG, DAILY
  5. BIOTIN [Concomitant]
     Indication: NAIL DISORDER
  6. BIOTIN [Concomitant]
     Indication: HAIR DISORDER
  7. CHANTIX [Suspect]
     Indication: SMOKING CESSATION THERAPY
     Dosage: UNK
     Dates: start: 201210, end: 2012

REACTIONS (3)
  - Feeling abnormal [Not Recovered/Not Resolved]
  - Malaise [Not Recovered/Not Resolved]
  - Nausea [Not Recovered/Not Resolved]
